FAERS Safety Report 9453021 (Version 1)
Quarter: 2013Q3

REPORT INFORMATION
  Report Type: Spontaneous
  Country: JP (occurrence: JP)
  Receive Date: 20130812
  Receipt Date: 20130812
  Transmission Date: 20140515
  Serious: Yes (Death, Hospitalization)
  Sender: FDA-Public Use
  Company Number: JP-CUBIST PHARMACEUTICAL, INC.-2012S1000722

PATIENT
  Age: 78 Year
  Sex: Female
  Weight: 34 kg

DRUGS (3)
  1. CUBICIN [Suspect]
     Indication: ENDOCARDITIS
     Dosage: 6.2 MG/KG, QD
     Route: 042
     Dates: start: 20120809, end: 20120816
  2. CUBICIN [Suspect]
     Dosage: 210 MG, QD
     Route: 042
     Dates: start: 20120809, end: 20120816
  3. ANTIBIOTICS [Concomitant]
     Indication: ENDOCARDITIS
     Dosage: 100 UNK, UNK
     Dates: start: 20130724, end: 20120809

REACTIONS (4)
  - Endocarditis [Fatal]
  - Cardiac failure chronic [Fatal]
  - Toxic skin eruption [Recovering/Resolving]
  - Diarrhoea [Unknown]
